FAERS Safety Report 11130176 (Version 1)
Quarter: 2015Q2

REPORT INFORMATION
  Report Type: Spontaneous
  Country: US (occurrence: US)
  Receive Date: 20150521
  Receipt Date: 20150521
  Transmission Date: 20150821
  Serious: Yes (Other)
  Sender: FDA-Public Use
  Company Number: US-ELI_LILLY_AND_COMPANY-US201505003213

PATIENT
  Sex: Female

DRUGS (3)
  1. PRENAT                             /07714001/ [Concomitant]
     Route: 064
  2. PROZAC [Suspect]
     Active Substance: FLUOXETINE HYDROCHLORIDE
     Indication: DEPRESSION
     Dosage: 40 MG, QD
     Route: 048
  3. PROZAC [Suspect]
     Active Substance: FLUOXETINE HYDROCHLORIDE
     Dosage: 20 MG, QD
     Route: 048
     Dates: start: 199511, end: 199512

REACTIONS (3)
  - Breech presentation [Unknown]
  - Maternal exposure during pregnancy [Unknown]
  - Pregnancy with advanced maternal age [Unknown]
